FAERS Safety Report 9726078 (Version 1)
Quarter: 2013Q4

REPORT INFORMATION
  Report Type: Spontaneous
  Country: FR (occurrence: None)
  Receive Date: 20131129
  Receipt Date: 20131129
  Transmission Date: 20140711
  Serious: Yes (Death)
  Sender: FDA-Public Use
  Company Number: 2013FR002602

PATIENT
  Age: 71 Year
  Sex: Female
  Weight: 57 kg

DRUGS (5)
  1. PONATINIB (AP24534) TABLET [Suspect]
     Indication: CHRONIC MYELOID LEUKAEMIA
     Dosage: 45 MG, QD, ORAL
     Route: 048
     Dates: start: 20130117, end: 20130618
  2. TAZOCILLINE (PIPERACILLIN SODIUM, TAZOBACTAM SODIUM)? [Concomitant]
  3. CEFTAZIDIM (CEFTAZIDIME) [Concomitant]
  4. VANCOMYCINE (VANCOMYCIN HYDROCHLORIDE) [Concomitant]
  5. FUROSEMIDE (FUROSEMIDE SODIUM) [Concomitant]

REACTIONS (3)
  - Sepsis [None]
  - Respiratory failure [None]
  - Chronic myeloid leukaemia [None]
